FAERS Safety Report 6702744-5 (Version None)
Quarter: 2010Q2

REPORT INFORMATION
  Report Type: 
  Country: None (occurrence: None)
  Receive Date: 20100428
  Receipt Date: 20100413
  Transmission Date: 20101027
  Serious: Yes (Death)
  Sender: FDA-Public Use
  Company Number: 2010001370

PATIENT
  Age: 75 Year
  Sex: Male
  Weight: 45.3 kg

DRUGS (5)
  1. ERLOTINIB               (TABLET) (ERLOTINIB) [Suspect]
     Indication: LARGE CELL CARCINOMA OF THE RESPIRATORY TRACT STAGE UNSPECIFIED
     Dosage: 150 MG,QD,ORAL, 50 MG,QD,ORAL
     Route: 046
     Dates: start: 20090820, end: 20090827
  2. ERLOTINIB               (TABLET) (ERLOTINIB) [Suspect]
     Indication: LARGE CELL CARCINOMA OF THE RESPIRATORY TRACT STAGE UNSPECIFIED
     Dosage: 150 MG,QD,ORAL, 50 MG,QD,ORAL
     Route: 046
     Dates: start: 20090904, end: 20091104
  3. PROTECADIN [Concomitant]
  4. MUCOSTA (REBAMIPIDE) [Concomitant]
  5. LEVOFLOXACIN [Concomitant]

REACTIONS (3)
  - LARGE CELL CARCINOMA OF THE RESPIRATORY TRACT STAGE UNSPECIFIED [None]
  - MALIGNANT NEOPLASM PROGRESSION [None]
  - PNEUMONIA [None]
